FAERS Safety Report 11273371 (Version 4)
Quarter: 2015Q3

REPORT INFORMATION
  Report Type: Spontaneous
  Country: US (occurrence: US)
  Receive Date: 20150715
  Receipt Date: 20150903
  Transmission Date: 20151125
  Serious: Yes (Death, Hospitalization)
  Sender: FDA-Public Use
  Company Number: US-JNJFOC-20150710466

PATIENT
  Age: 67 Year
  Sex: Male
  Weight: 105 kg

DRUGS (14)
  1. NORTRIPTYLINE [Concomitant]
     Active Substance: NORTRIPTYLINE
  2. FERROUS SULFATE [Concomitant]
     Active Substance: FERROUS SULFATE\FERROUS SULFATE, DRIED
  3. IMBRUVICA [Suspect]
     Active Substance: IBRUTINIB
     Indication: CHRONIC LYMPHOCYTIC LEUKAEMIA
     Route: 048
     Dates: start: 20150628, end: 20150628
  4. VITAMIN D [Concomitant]
     Active Substance: CHOLECALCIFEROL
  5. FENTANYL. [Concomitant]
     Active Substance: FENTANYL
     Dosage: 50 EVERY 3DAYS, PRN
     Route: 062
  6. MOTRIN [Concomitant]
     Active Substance: IBUPROFEN
     Indication: PAIN
     Dosage: TID PRN
  7. SENNA [Concomitant]
     Active Substance: SENNA LEAF\SENNOSIDES\SENNOSIDES A AND B
     Indication: LAXATIVE SUPPORTIVE CARE
     Dosage: 1DF
  8. PEPCID [Concomitant]
     Active Substance: FAMOTIDINE
  9. ZOFRAN [Concomitant]
     Active Substance: ONDANSETRON HYDROCHLORIDE
     Indication: NAUSEA
     Dosage: Q4 HOURS PRN
  10. VITAMIN C [Concomitant]
     Active Substance: ASCORBIC ACID
  11. COLACE [Concomitant]
     Active Substance: DOCUSATE SODIUM
  12. CARBIDOPA-LEVODOPA [Concomitant]
     Active Substance: CARBIDOPA\LEVODOPA
     Dosage: 1 DF
  13. MORPHINE SULFATE. [Concomitant]
     Active Substance: MORPHINE SULFATE
     Dosage: PRN, Q4 HOURS
  14. COMPAZINE [Concomitant]
     Active Substance: PROCHLORPERAZINE MALEATE
     Indication: NAUSEA
     Dosage: PRN Q 6HOURS

REACTIONS (8)
  - Rash [Unknown]
  - White blood cell count increased [Unknown]
  - Pruritus [Not Recovered/Not Resolved]
  - Transient ischaemic attack [Recovered/Resolved]
  - Blister [Unknown]
  - Death [Fatal]
  - Diarrhoea [Recovered/Resolved]
  - Burning sensation [Unknown]

NARRATIVE: CASE EVENT DATE: 2015
